FAERS Safety Report 4864054-0 (Version None)
Quarter: 2005Q4

REPORT INFORMATION
  Report Type: 
  Country: None (occurrence: None)
  Receive Date: 20051219
  Receipt Date: 20051219
  Transmission Date: 20060501
  Serious: Yes (Hospitalization, Disabling, Other)
  Sender: FDA-Public Use
  Company Number: None

PATIENT
  Age: 53 Year
  Sex: Female
  Weight: 58.9676 kg

DRUGS (2)
  1. CLONAZEPAM [Suspect]
     Indication: FIBROMYALGIA
     Dosage: SEE IMAGE
     Route: 048
     Dates: start: 20050901
  2. CLONAZEPAM [Suspect]
     Indication: SLEEP DISORDER
     Dosage: SEE IMAGE
     Route: 048
     Dates: start: 20050901

REACTIONS (16)
  - CONDITION AGGRAVATED [None]
  - DEPRESSION [None]
  - DIFFICULTY IN WALKING [None]
  - GAIT DISTURBANCE [None]
  - HEADACHE [None]
  - HEMIPARESIS [None]
  - HYPOAESTHESIA [None]
  - IMPAIRED DRIVING ABILITY [None]
  - IMPAIRED WORK ABILITY [None]
  - MENIERE'S DISEASE [None]
  - MENTAL DISORDER [None]
  - MOOD ALTERED [None]
  - PARAESTHESIA [None]
  - PERSONALITY CHANGE [None]
  - SENSATION OF HEAVINESS [None]
  - SENSORY DISTURBANCE [None]
